FAERS Safety Report 7854045-X (Version None)
Quarter: 2011Q4

REPORT INFORMATION
  Report Type: 
  Country: None (occurrence: None)
  Receive Date: 20111026
  Receipt Date: 20111019
  Transmission Date: 20120403
  Serious: No
  Sender: FDA-Public Use
  Company Number: US-PFIZER INC-2011253992

PATIENT
  Age: 64 Year
  Sex: Female
  Weight: 68.2 kg

DRUGS (3)
  1. REVATIO [Suspect]
     Dosage: UNK
  2. TREPROSTINIL SODIUM [Suspect]
     Indication: PULMONARY ARTERIAL HYPERTENSION
     Dosage: 216 UG, 1X/DAY (54 MCG, 4 IN 1 D)
     Dates: start: 20101108
  3. TRACLEER [Concomitant]
     Dosage: UNK

REACTIONS (1)
  - DIARRHOEA [None]
